FAERS Safety Report 24395405 (Version 2)
Quarter: 2024Q4

REPORT INFORMATION
  Report Type: Spontaneous
  Country: ES (occurrence: ES)
  Receive Date: 20241004
  Receipt Date: 20241015
  Transmission Date: 20250115
  Serious: Yes (Other)
  Sender: TAKEDA
  Company Number: ES-STADA-01298962

PATIENT
  Age: 48 Year
  Sex: Male

DRUGS (8)
  1. ICLUSIG [Suspect]
     Active Substance: PONATINIB HYDROCHLORIDE
     Indication: Chronic myeloid leukaemia
     Dosage: 15 MILLIGRAM, QD
     Route: 065
  2. DASATINIB [Suspect]
     Active Substance: DASATINIB
     Indication: Chronic myeloid leukaemia
     Dosage: 100 MILLIGRAM, QD
     Route: 065
  3. SULFAMETHOXAZOLE\TRIMETHOPRIM [Concomitant]
     Active Substance: SULFAMETHOXAZOLE\TRIMETHOPRIM
     Indication: Acute graft versus host disease
     Dosage: 80 MILLIGRAM/400 MILLIGRAM, QD
     Route: 065
  4. BOSUTINIB [Concomitant]
     Active Substance: BOSUTINIB
     Indication: Chronic myeloid leukaemia
     Dosage: 500 MILLIGRAM, QD
     Route: 065
  5. SIROLIMUS [Concomitant]
     Active Substance: SIROLIMUS
     Indication: Acute graft versus host disease
     Dosage: 1 MILLIGRAM, QD
     Route: 065
  6. DEXAMETHASONE [Concomitant]
     Active Substance: DEXAMETHASONE
     Indication: Autoimmune retinopathy
     Dosage: UNK
     Route: 050
  7. FOLIC ACID [Concomitant]
     Active Substance: FOLIC ACID
     Indication: Acute graft versus host disease
     Dosage: 15 MILLIGRAM, WEEKLY
     Route: 065
  8. ACYCLOVIR [Concomitant]
     Active Substance: ACYCLOVIR
     Indication: Acute graft versus host disease
     Dosage: 800 MILLIGRAM, Q12H
     Route: 065

REACTIONS (8)
  - Encephalopathy [Unknown]
  - Drug ineffective [Unknown]
  - Acute graft versus host disease [Unknown]
  - Autoimmune retinopathy [Unknown]
  - Chronic graft versus host disease in eye [Unknown]
  - Disease progression [Unknown]
  - Philadelphia positive chronic myeloid leukaemia [Unknown]
  - Cytomegalovirus test positive [Unknown]
